FAERS Safety Report 4532555-0 (Version None)
Quarter: 2004Q4

REPORT INFORMATION
  Report Type: 
  Country: None (occurrence: None)
  Receive Date: 20041208
  Receipt Date: 20040616
  Transmission Date: 20050328
  Serious: Yes (Other)
  Sender: FDA-Public Use
  Company Number: 20040600323

PATIENT
  Age: 20 Year
  Sex: Male

DRUGS (3)
  1. LORAZEPAM [Suspect]
     Indication: DRUG LEVEL
     Dosage: 2 MG ONCE IM
     Route: 030
     Dates: start: 20040527, end: 20040527
  2. ARIPIPRAZOLE (BRISTOL MYERS SQUIBB) [Suspect]
     Indication: DRUG LEVEL
     Dosage: 15 MG IM
     Route: 030
     Dates: start: 20040527, end: 20040527
  3. PLACEBO [Suspect]
     Indication: DRUG LEVEL
     Dosage: 15 MG IM
     Route: 030
     Dates: start: 20040527, end: 20040527

REACTIONS (1)
  - SYNCOPE [None]
